FAERS Safety Report 26214389 (Version 1)
Quarter: 2025Q4

REPORT INFORMATION
  Report Type: Spontaneous
  Country: US (occurrence: US)
  Receive Date: 20251230
  Receipt Date: 20251230
  Transmission Date: 20260117
  Serious: No
  Sender: JOHNSON AND JOHNSON
  Company Number: US-JNJFOC-20251236996

PATIENT

DRUGS (1)
  1. TREMFYA [Suspect]
     Active Substance: GUSELKUMAB
     Indication: Colitis ulcerative

REACTIONS (11)
  - Haemorrhage [Unknown]
  - Adverse event [Unknown]
  - Adverse event [Unknown]
  - Adverse event [Unknown]
  - Product leakage [Unknown]
  - Underdose [Unknown]
  - Product dose omission issue [Unknown]
  - Adverse event [Unknown]
  - Vision blurred [Unknown]
  - Adverse event [Unknown]
  - Product dose omission issue [Unknown]
